FAERS Safety Report 6711307-7 (Version None)
Quarter: 2010Q2

REPORT INFORMATION
  Report Type: 
  Country: None (occurrence: None)
  Receive Date: 20100505
  Receipt Date: 20100423
  Transmission Date: 20101027
  Serious: Yes (Hospitalization)
  Sender: FDA-Public Use
  Company Number: JP-PFIZER INC-2010053478

PATIENT
  Age: 72 Year
  Sex: Female

DRUGS (10)
  1. ZITHROMAC SR [Suspect]
     Indication: UPPER RESPIRATORY TRACT INFLAMMATION
     Dosage: 2 G, 1X/DAY
     Route: 048
     Dates: start: 20100419, end: 20100419
  2. MARZULENE S [Concomitant]
     Route: 048
     Dates: end: 20100421
  3. SELBEX [Concomitant]
     Route: 048
     Dates: end: 20100421
  4. VITAMIN C [Concomitant]
     Route: 048
     Dates: end: 20100421
  5. DORAL [Concomitant]
     Route: 048
     Dates: end: 20100421
  6. EURODIN [Concomitant]
     Route: 048
     Dates: end: 20100421
  7. RESLIN [Concomitant]
     Route: 048
     Dates: end: 20100421
  8. PURSENNID [Concomitant]
     Route: 048
     Dates: end: 20100421
  9. GRANDAXIN [Concomitant]
     Route: 048
     Dates: end: 20100421
  10. ROCALTROL [Concomitant]
     Route: 048
     Dates: end: 20100421

REACTIONS (2)
  - ASTHENIA [None]
  - BLOOD CREATINE PHOSPHOKINASE INCREASED [None]
